FAERS Safety Report 5885651-X (Version None)
Quarter: 2008Q3

REPORT INFORMATION
  Report Type: 
  Country: None (occurrence: None)
  Receive Date: 20080912
  Receipt Date: 20080828
  Transmission Date: 20090109
  Serious: Yes (Death, Hospitalization)
  Sender: FDA-Public Use
  Company Number: CQT2-2006-00012

PATIENT
  Age: 73 Year
  Sex: Female

DRUGS (3)
  1. ANAGRELIDE HCL [Suspect]
     Indication: ESSENTIAL THROMBOCYTHAEMIA
     Dosage: 2.5 MG DAILY, ORAL
     Route: 048
     Dates: start: 20051018
  2. BUSULFAN               (BUSULFAN) CAPSULE [Suspect]
     Indication: ESSENTIAL THROMBOCYTHAEMIA
     Dates: start: 19910101, end: 19990101
  3. HYDROXYUREA [Suspect]
     Indication: ESSENTIAL THROMBOCYTHAEMIA
     Dosage: 500 MG,2X/DAY:BID,ORAL
     Route: 048
     Dates: start: 20001201, end: 20050110

REACTIONS (5)
  - DRUG INTOLERANCE [None]
  - EMBOLISM [None]
  - INTERSTITIAL LUNG DISEASE [None]
  - PULMONARY FIBROSIS [None]
  - RENAL IMPAIRMENT [None]
